FAERS Safety Report 21198025 (Version 1)
Quarter: 2022Q3

REPORT INFORMATION
  Report Type: Spontaneous
  Country: RU (occurrence: RU)
  Receive Date: 20220810
  Receipt Date: 20220810
  Transmission Date: 20221026
  Serious: Yes (Other)
  Sender: FDA-Public Use
  Company Number: RU-TEVA-2022-RU-2062654

PATIENT
  Sex: Female

DRUGS (3)
  1. CARBAMAZEPINE [Suspect]
     Active Substance: CARBAMAZEPINE
     Indication: Epilepsy
     Route: 065
     Dates: start: 2014
  2. CARBAMAZEPINE [Suspect]
     Active Substance: CARBAMAZEPINE
     Dosage: SOMETIMES RECEIVE 400 MG
     Route: 065
  3. CARBAMAZEPINE [Suspect]
     Active Substance: CARBAMAZEPINE
     Dosage: EXPIRED PRODUCT RECEIVED
     Route: 065

REACTIONS (4)
  - Seizure [Unknown]
  - Gastrointestinal disorder [Unknown]
  - Expired product administered [Unknown]
  - Product supply issue [Unknown]
